FAERS Safety Report 16064399 (Version 2)
Quarter: 2019Q2

REPORT INFORMATION
  Report Type: Spontaneous
  Country: DE (occurrence: DE)
  Receive Date: 20190312
  Receipt Date: 20190523
  Transmission Date: 20190711
  Serious: Yes (Other)
  Sender: FDA-Public Use
  Company Number: DE-MYLANLABS-2019M1022482

PATIENT
  Age: 7 Year
  Sex: Male

DRUGS (4)
  1. MARCUMAR [Concomitant]
     Active Substance: PHENPROCOUMON
     Dosage: UNK
  2. SILDENAFIL. [Suspect]
     Active Substance: SILDENAFIL
     Indication: PULMONARY HYPERTENSION
     Dosage: 15 MILLIGRAM, TID (45 MG, QD)
     Route: 065
     Dates: start: 20180506, end: 20180813
  3. RAMIPRIL. [Concomitant]
     Active Substance: RAMIPRIL
     Dosage: 2.5 MILLIGRAM, QD
     Route: 065
  4. VIGANTOLETTEN [Concomitant]
     Active Substance: CHOLECALCIFEROL
     Dosage: 2000 INTERNATIONAL UNIT, QD
     Route: 048

REACTIONS (13)
  - Oxygen saturation decreased [Unknown]
  - Choking [Unknown]
  - Crying [Unknown]
  - Agitation [Unknown]
  - Cognitive disorder [Unknown]
  - Abnormal behaviour [Not Recovered/Not Resolved]
  - Memory impairment [Unknown]
  - Eating disorder [Not Recovered/Not Resolved]
  - Vomiting [Unknown]
  - Heart rate increased [Unknown]
  - Hallucination [Unknown]
  - Anxiety [Not Recovered/Not Resolved]
  - Restlessness [Not Recovered/Not Resolved]

NARRATIVE: CASE EVENT DATE: 2018
